FAERS Safety Report 10844150 (Version 1)
Quarter: 2015Q1

REPORT INFORMATION
  Report Type: Spontaneous
  Country: US (occurrence: US)
  Receive Date: 20150220
  Receipt Date: 20150220
  Transmission Date: 20150721
  Serious: Yes (Hospitalization)
  Sender: FDA-Public Use
  Company Number: US-PFIZER INC-2015063398

PATIENT
  Age: 74 Year
  Sex: Female
  Weight: 59 kg

DRUGS (2)
  1. CELEBREX [Suspect]
     Active Substance: CELECOXIB
     Indication: ARTHRITIS
     Dosage: 200 MG, DAILY
     Route: 048
  2. PRILOSEC [Concomitant]
     Active Substance: OMEPRAZOLE MAGNESIUM
     Indication: PROPHYLAXIS
     Dosage: 20 MG, 2X/DAY (CAPSULE ONE IN THE MORNING AND ONE IN THE AFTERNOON)
     Route: 048

REACTIONS (4)
  - Arthropathy [Unknown]
  - Abdominal discomfort [Unknown]
  - Back disorder [Unknown]
  - Back disorder [Unknown]

NARRATIVE: CASE EVENT DATE: 201109
